FAERS Safety Report 6652636-5 (Version None)
Quarter: 2010Q1

REPORT INFORMATION
  Report Type: 
  Country: None (occurrence: None)
  Receive Date: 20100326
  Receipt Date: 20100317
  Transmission Date: 20100710
  Serious: No
  Sender: FDA-Public Use
  Company Number: US-BIOGENIDEC-2010BI009467

PATIENT
  Age: 33 Year
  Sex: Male

DRUGS (2)
  1. TYSABRI [Suspect]
     Indication: MULTIPLE SCLEROSIS
     Route: 042
     Dates: start: 20080609, end: 20090801
  2. TYSABRI [Suspect]
     Route: 042
     Dates: start: 20091201, end: 20091201

REACTIONS (4)
  - ARTHRALGIA [None]
  - INFLUENZA [None]
  - MUSCULOSKELETAL STIFFNESS [None]
  - MYALGIA [None]
